FAERS Safety Report 7435342-9 (Version None)
Quarter: 2011Q2

REPORT INFORMATION
  Report Type: 
  Country: None (occurrence: None)
  Receive Date: 20110425
  Receipt Date: 20110414
  Transmission Date: 20111010
  Serious: Yes (Hospitalization)
  Sender: FDA-Public Use
  Company Number: A0924088A

PATIENT
  Age: 44 Year
  Sex: Female

DRUGS (3)
  1. VENTOLIN [Suspect]
     Route: 065
     Dates: start: 20090203
  2. ADVAIR DISKUS 100/50 [Suspect]
     Route: 065
     Dates: start: 20090203
  3. FOOD [Suspect]
     Indication: ILL-DEFINED DISORDER
     Route: 065

REACTIONS (3)
  - DYSPNOEA [None]
  - FOOD ALLERGY [None]
  - ADVERSE EVENT [None]
